FAERS Safety Report 17420470 (Version 2)
Quarter: 2020Q2

REPORT INFORMATION
  Report Type: Report from Study
  Country: BR (occurrence: BR)
  Receive Date: 20200214
  Receipt Date: 20200605
  Transmission Date: 20200713
  Serious: Yes (Other)
  Sender: FDA-Public Use
  Company Number: NVSC2020BR005989

PATIENT
  Age: 48 Year
  Sex: Female

DRUGS (2)
  1. COSENTYX [Suspect]
     Active Substance: SECUKINUMAB
     Dosage: 300 MG
     Route: 065
     Dates: start: 201911
  2. COSENTYX [Suspect]
     Active Substance: SECUKINUMAB
     Indication: PSORIASIS
     Dosage: 300 MG
     Route: 065
     Dates: start: 20190704

REACTIONS (9)
  - Dysphonia [Not Recovered/Not Resolved]
  - Increased bronchial secretion [Recovered/Resolved]
  - Pharyngitis bacterial [Recovered/Resolved]
  - Cough [Recovered/Resolved]
  - Decreased immune responsiveness [Not Recovered/Not Resolved]
  - Pharyngitis [Unknown]
  - Leukopenia [Unknown]
  - Drug hypersensitivity [Unknown]
  - Malaise [Recovered/Resolved]

NARRATIVE: CASE EVENT DATE: 201912
